FAERS Safety Report 16483074 (Version 3)
Quarter: 2019Q3

REPORT INFORMATION
  Report Type: Spontaneous
  Country: US (occurrence: US)
  Receive Date: 20190627
  Receipt Date: 20190726
  Transmission Date: 20191004
  Serious: Yes (Other)
  Sender: FDA-Public Use
  Company Number: US-BAYER-2019-117852

PATIENT
  Age: 26 Year
  Sex: Female
  Weight: 49.89 kg

DRUGS (2)
  1. MIRENA [Suspect]
     Active Substance: LEVONORGESTREL
     Indication: CONTRACEPTION
     Dosage: 20 MCG/24HR, CONT
     Route: 015
     Dates: start: 20180626, end: 20190619
  2. MIRENA [Suspect]
     Active Substance: LEVONORGESTREL
     Indication: CONTRACEPTION

REACTIONS (9)
  - Abdominal pain [Recovered/Resolved]
  - Device breakage [None]
  - Device difficult to use [None]
  - Uterine perforation [Recovered/Resolved]
  - Device deployment issue [None]
  - Vulvovaginal discomfort [None]
  - Genital haemorrhage [Recovered/Resolved]
  - Pelvic pain [None]
  - Device physical property issue [None]

NARRATIVE: CASE EVENT DATE: 20190617
